FAERS Safety Report 10039606 (Version 1)
Quarter: 2014Q1

REPORT INFORMATION
  Report Type: Spontaneous
  Country: EC (occurrence: EC)
  Receive Date: 20140326
  Receipt Date: 20140326
  Transmission Date: 20141002
  Serious: Yes (Death, Other)
  Sender: FDA-Public Use
  Company Number: EC-PFIZER INC-2014085902

PATIENT
  Age: 85 Year
  Sex: Female

DRUGS (1)
  1. NORVASC [Suspect]
     Dosage: 5 MG, 1X/DAY
     Route: 048
     Dates: start: 2010

REACTIONS (1)
  - Pneumonia [Fatal]
